FAERS Safety Report 4359444-9 (Version None)
Quarter: 2004Q2

REPORT INFORMATION
  Report Type: 
  Country: None (occurrence: None)
  Receive Date: 20040512
  Receipt Date: 20030426
  Transmission Date: 20050107
  Serious: Yes (Hospitalization)
  Sender: FDA-Public Use
  Company Number: USA040465968

PATIENT
  Age: 83 Year
  Sex: Female

DRUGS (3)
  1. FORTEO [Suspect]
     Indication: FALL
     Dates: start: 29920201
  2. FORTEO [Suspect]
     Indication: SPINAL FRACTURE
     Dates: start: 29920201
  3. FOSAMAX [Concomitant]

REACTIONS (2)
  - CELLULITIS [None]
  - FALL [None]
